FAERS Safety Report 20374160 (Version 1)
Quarter: 2022Q1

REPORT INFORMATION
  Report Type: Spontaneous
  Country: JP (occurrence: JP)
  Receive Date: 20220125
  Receipt Date: 20220125
  Transmission Date: 20220423
  Serious: Yes (Hospitalization, Other)
  Sender: FDA-Public Use
  Company Number: JP-Inventia-000530

PATIENT
  Age: 57 Year
  Sex: Male

DRUGS (1)
  1. METFORMIN HYDROCHLORIDE [Suspect]
     Active Substance: METFORMIN HYDROCHLORIDE
     Indication: Diabetic nephropathy

REACTIONS (2)
  - Toxic encephalopathy [Recovered/Resolved with Sequelae]
  - Azotaemia [Recovered/Resolved with Sequelae]
